FAERS Safety Report 7545861-2 (Version None)
Quarter: 2011Q2

REPORT INFORMATION
  Report Type: 
  Country: None (occurrence: None)
  Receive Date: 20110613
  Receipt Date: 20110613
  Transmission Date: 20111010
  Serious: Yes (Other)
  Sender: FDA-Public Use
  Company Number: None

PATIENT
  Age: 52 Year
  Sex: Female

DRUGS (1)
  1. BUPROPION HCL [Suspect]
     Indication: DEPRESSION
     Dates: start: 20110503, end: 20110605

REACTIONS (7)
  - APPETITE DISORDER [None]
  - PRODUCT SUBSTITUTION ISSUE [None]
  - NO THERAPEUTIC RESPONSE [None]
  - WEIGHT ABNORMAL [None]
  - FATIGUE [None]
  - ABDOMINAL PAIN [None]
  - SEDATION [None]
